FAERS Safety Report 9541873 (Version 2)
Quarter: 2013Q4

REPORT INFORMATION
  Report Type: Spontaneous
  Country: DE (occurrence: DE)
  Receive Date: 20130923
  Receipt Date: 20131115
  Transmission Date: 20140711
  Serious: Yes (Other)
  Sender: FDA-Public Use
  Company Number: DE-UCBSA-098538

PATIENT
  Age: 16 Year
  Sex: Female

DRUGS (5)
  1. CIMZIA [Suspect]
     Indication: RHEUMATOID ARTHRITIS
     Dosage: 2 INJECTIONS EVERY 14 DAYS
  2. ARAVA [Concomitant]
     Dosage: UNKNOWN
  3. HYDROMORPHONE [Concomitant]
  4. NOVAMIN [Concomitant]
     Dosage: UNKNOWN
  5. SYNEUDON [Concomitant]

REACTIONS (4)
  - Sleep disorder [Unknown]
  - Circulatory collapse [Unknown]
  - Convulsion [Unknown]
  - Hyporeflexia [Unknown]
